FAERS Safety Report 9459828 (Version 1)
Quarter: 2013Q3

REPORT INFORMATION
  Report Type: Spontaneous
  Country: BR (occurrence: BR)
  Receive Date: 20130815
  Receipt Date: 20130815
  Transmission Date: 20140515
  Serious: Yes (Other)
  Sender: FDA-Public Use
  Company Number: BR-PFIZER INC-2013235657

PATIENT
  Age: 55 Year
  Sex: Male
  Weight: 110 kg

DRUGS (2)
  1. ZOLOFT [Suspect]
     Dosage: UNSPECIFIED DOSAGE, 2X/DAY
     Dates: start: 20001129
  2. ARADOIS [Concomitant]
     Indication: HYPERTENSION
     Dosage: UNSPECIFIED DOSAGE, 1X/DAY
     Dates: start: 2007

REACTIONS (1)
  - Aortic valve disease [Unknown]
